FAERS Safety Report 8014557-5 (Version None)
Quarter: 2011Q4

REPORT INFORMATION
  Report Type: 
  Country: None (occurrence: None)
  Receive Date: 20111229
  Receipt Date: 20111216
  Transmission Date: 20120403
  Serious: Yes (Hospitalization)
  Sender: FDA-Public Use
  Company Number: GB-BRISTOL-MYERS SQUIBB COMPANY-16262065

PATIENT
  Age: 65 Year
  Sex: Male

DRUGS (4)
  1. BLINDED: SAXAGLIPTIN [Suspect]
     Indication: TYPE 2 DIABETES MELLITUS
     Dosage: INTERRUPTED ON 30OCT10 + 10SEP11. RESUMED ON 20JAN11.
     Dates: start: 20101027
  2. GLICLAZIDE [Suspect]
     Indication: TYPE 2 DIABETES MELLITUS
  3. BLINDED: PLACEBO [Suspect]
     Indication: TYPE 2 DIABETES MELLITUS
     Dosage: INTERRUPTED ON 30OCT10 + 10SEP11. RESUMED ON 20JAN11.
     Dates: start: 20101027
  4. METFORMIN HCL [Suspect]
     Indication: TYPE 2 DIABETES MELLITUS

REACTIONS (3)
  - HYPOGLYCAEMIA [None]
  - CONDITION AGGRAVATED [None]
  - GASTROENTERITIS [None]
